FAERS Safety Report 26156663 (Version 1)
Quarter: 2025Q4

REPORT INFORMATION
  Report Type: Spontaneous
  Country: US (occurrence: US)
  Receive Date: 20251215
  Receipt Date: 20251215
  Transmission Date: 20260118
  Serious: No
  Sender: ALCON
  Company Number: US-ALCON LABORATORIES-ALC2025US006751

PATIENT
  Age: 85 Year
  Sex: Female

DRUGS (1)
  1. ACOLTREMON [Suspect]
     Active Substance: ACOLTREMON
     Indication: Product used for unknown indication
     Dosage: INSTILL 1 DROP INTO BOTH EYES TWICE A DAY APPROXIMATELY 12 HOURS APART
     Route: 047
     Dates: start: 20251024

REACTIONS (3)
  - Adverse event [Unknown]
  - Product container issue [Unknown]
  - Drug ineffective [Unknown]
